FAERS Safety Report 8083726-0 (Version None)
Quarter: 2012Q1

REPORT INFORMATION
  Report Type: 
  Country: None (occurrence: None)
  Receive Date: 20120127
  Receipt Date: 20110121
  Transmission Date: 20120608
  Serious: No
  Sender: FDA-Public Use
  Company Number: US-ABBOTT-11P-163-0700158-00

PATIENT
  Sex: Female

DRUGS (2)
  1. HUMIRA [Suspect]
     Indication: RHEUMATOID ARTHRITIS
     Dates: start: 20101101, end: 20101201
  2. PREDNISONE TAB [Concomitant]
     Indication: ARTHRALGIA

REACTIONS (2)
  - ARTHRALGIA [None]
  - WHITE BLOOD CELL COUNT DECREASED [None]
